FAERS Safety Report 6602344-1 (Version None)
Quarter: 2010Q1

REPORT INFORMATION
  Report Type: 
  Country: None (occurrence: None)
  Receive Date: 20100225
  Receipt Date: 20100223
  Transmission Date: 20100710
  Serious: Yes (Death)
  Sender: FDA-Public Use
  Company Number: A0845941A

PATIENT
  Age: 19 Year
  Sex: Male

DRUGS (2)
  1. ADVAIR DISKUS 100/50 [Suspect]
     Indication: ASTHMA
     Route: 055
  2. CONCERTA [Concomitant]

REACTIONS (2)
  - ASTHMA [None]
  - DRUG ADMINISTRATION ERROR [None]
